APPROVED DRUG PRODUCT: TRIAMTERENE AND HYDROCHLOROTHIAZIDE
Active Ingredient: HYDROCHLOROTHIAZIDE; TRIAMTERENE
Strength: 25MG;37.5MG
Dosage Form/Route: CAPSULE;ORAL
Application: A074970 | Product #001
Applicant: ANI PHARMACEUTICALS INC
Approved: Jan 6, 1998 | RLD: No | RS: No | Type: DISCN